FAERS Safety Report 6409868-0 (Version None)
Quarter: 2009Q4

REPORT INFORMATION
  Report Type: 
  Country: None (occurrence: None)
  Receive Date: 20091022
  Receipt Date: 20090923
  Transmission Date: 20100525
  Serious: No
  Sender: FDA-Public Use
  Company Number: US-BAYER-200914892BCC

PATIENT
  Age: 72 Year
  Sex: Female
  Weight: 78 kg

DRUGS (6)
  1. ALEVE [Suspect]
     Indication: NASOPHARYNGITIS
     Route: 048
     Dates: end: 20090923
  2. MUCINEX [Concomitant]
  3. ZYPREXA [Concomitant]
  4. METFORMIN [Concomitant]
  5. LADOL [Concomitant]
  6. ZYRTEC [Concomitant]

REACTIONS (1)
  - FAECES DISCOLOURED [None]
